FAERS Safety Report 7442498-0 (Version None)
Quarter: 2011Q2

REPORT INFORMATION
  Report Type: 
  Country: None (occurrence: None)
  Receive Date: 20110428
  Receipt Date: 20110424
  Transmission Date: 20111010
  Serious: Yes (Hospitalization)
  Sender: FDA-Public Use
  Company Number: CO-ROCHE-773548

PATIENT
  Sex: Male

DRUGS (1)
  1. ACTEMRA [Suspect]
     Indication: RHEUMATOID ARTHRITIS
     Route: 042
     Dates: start: 20100830, end: 20101217

REACTIONS (2)
  - PNEUMONIA [None]
  - CARDIAC FAILURE CONGESTIVE [None]
